FAERS Safety Report 22928714 (Version 2)
Quarter: 2023Q4

REPORT INFORMATION
  Report Type: Spontaneous
  Country: GR (occurrence: GR)
  Receive Date: 20230911
  Receipt Date: 20231003
  Transmission Date: 20240110
  Serious: Yes (Death, Life-Threatening, Other)
  Sender: FDA-Public Use
  Company Number: GR-AMGEN-GRCSP2023156879

PATIENT

DRUGS (1)
  1. CARFILZOMIB [Suspect]
     Active Substance: CARFILZOMIB
     Indication: Plasma cell myeloma refractory
     Dosage: UNK
     Route: 065

REACTIONS (14)
  - Plasma cell myeloma [Fatal]
  - Infection [Fatal]
  - Accident [Fatal]
  - COVID-19 [Fatal]
  - Death [Fatal]
  - Keratopathy [Recovered/Resolved]
  - Ulcerative keratitis [Unknown]
  - Plasma cell myeloma refractory [Unknown]
  - Septic shock [Unknown]
  - Thrombocytopenia [Unknown]
  - Visual acuity reduced [Unknown]
  - Conjunctival haemorrhage [Unknown]
  - Xerophthalmia [Unknown]
  - Fatigue [Unknown]
